FAERS Safety Report 17397130 (Version 5)
Quarter: 2023Q4

REPORT INFORMATION
  Report Type: Spontaneous
  Country: US (occurrence: US)
  Receive Date: 20200210
  Receipt Date: 20231229
  Transmission Date: 20240110
  Serious: Yes (Other)
  Sender: FDA-Public Use
  Company Number: US-PFIZER INC-2020058346

PATIENT
  Age: 64 Year
  Sex: Female

DRUGS (2)
  1. XELJANZ XR [Suspect]
     Active Substance: TOFACITINIB CITRATE
     Dosage: XELJANZ XR 11 MG ORAL TABLET EXTENDED RELEASE 24 HOUR 1 TAB PO DAILY
     Route: 048
  2. XELJANZ XR [Suspect]
     Active Substance: TOFACITINIB CITRATE
     Dosage: UNK, ALTERNATE DAY

REACTIONS (5)
  - Mental impairment [Unknown]
  - Diabetes mellitus [Unknown]
  - Malaise [Unknown]
  - Memory impairment [Unknown]
  - Intentional product misuse [Unknown]
